FAERS Safety Report 7217716-4 (Version None)
Quarter: 2011Q1

REPORT INFORMATION
  Report Type: 
  Country: None (occurrence: None)
  Receive Date: 20110110
  Receipt Date: 20101230
  Transmission Date: 20110831
  Serious: Yes (Life-Threatening, Hospitalization)
  Sender: FDA-Public Use
  Company Number: DE-JNJFOC-20101206954

PATIENT
  Sex: Female
  Weight: 84.2 kg

DRUGS (8)
  1. TORASEMID [Concomitant]
     Indication: CARDIAC FAILURE
     Route: 048
  2. DECORTIN [Concomitant]
  3. REMICADE [Suspect]
     Indication: COLITIS ULCERATIVE
     Route: 042
  4. VOTUM [Concomitant]
     Indication: CARDIAC FAILURE
     Dosage: 20/12.5 MG
     Route: 048
  5. ALLOPURINOL [Concomitant]
     Route: 048
  6. DECORTIN [Concomitant]
  7. DECORTIN [Concomitant]
  8. PENTASA [Concomitant]

REACTIONS (1)
  - EMBOLISM ARTERIAL [None]
